FAERS Safety Report 4765826-3 (Version None)
Quarter: 2005Q3

REPORT INFORMATION
  Report Type: 
  Country: None (occurrence: None)
  Receive Date: 20050906
  Receipt Date: 20050824
  Transmission Date: 20060218
  Serious: Yes (Death, Other)
  Sender: FDA-Public Use
  Company Number: 2005119327

PATIENT
  Age: 14 Year

DRUGS (2)
  1. VORICONAZOLE (VORICONAZOLE) [Suspect]
     Indication: PROPHYLAXIS
  2. CHEMOTHERAPY NOS (CHEMOTHERAPY NOS) [Concomitant]

REACTIONS (10)
  - CARDIAC DISORDER [None]
  - CARDIAC FAILURE [None]
  - CONVULSION [None]
  - INTERVERTEBRAL DISCITIS [None]
  - INTRACARDIAC THROMBUS [None]
  - MICROSPORUM INFECTION [None]
  - PNEUMONIA [None]
  - PULMONARY NECROSIS [None]
  - THERAPY NON-RESPONDER [None]
  - ZYGOMYCOSIS [None]
